FAERS Safety Report 7798495-9 (Version None)
Quarter: 2011Q4

REPORT INFORMATION
  Report Type: 
  Country: None (occurrence: None)
  Receive Date: 20111005
  Receipt Date: 20110930
  Transmission Date: 20120403
  Serious: No
  Sender: FDA-Public Use
  Company Number: US-PFIZER INC-2011234311

PATIENT
  Age: 78 Year
  Sex: Male

DRUGS (2)
  1. VIAGRA [Suspect]
     Dosage: 100 MG, UNK
  2. VIAGRA [Suspect]
     Dosage: UNK
     Route: 048

REACTIONS (2)
  - BLOOD PRESSURE ABNORMAL [None]
  - DIZZINESS [None]
